FAERS Safety Report 5300392-5 (Version None)
Quarter: 2007Q2

REPORT INFORMATION
  Report Type: 
  Country: None (occurrence: None)
  Receive Date: 20070413
  Receipt Date: 20070413
  Transmission Date: 20071010
  Serious: Yes (Life-Threatening, Hospitalization)
  Sender: FDA-Public Use
  Company Number: None

PATIENT
  Age: 49 Year
  Sex: Male
  Weight: 88.4514 kg

DRUGS (2)
  1. LAMICTAL [Suspect]
     Indication: BIPOLAR DISORDER
     Dosage: 1/2 TABLET TWICE DAY ONE WEEK  1 TABLET TWICE DAY THEREAFTER
     Dates: start: 20070209
  2. LAMICTAL [Suspect]
     Indication: BIPOLAR DISORDER
     Dosage: 1/2 TABLET TWICE DAY ONE WEEK  1 TABLET TWICE DAY THEREAFTER
     Dates: start: 20070325

REACTIONS (4)
  - FEELING HOT [None]
  - OEDEMA PERIPHERAL [None]
  - SKIN DISCOLOURATION [None]
  - URTICARIA [None]
